FAERS Safety Report 6103666-3 (Version None)
Quarter: 2009Q1

REPORT INFORMATION
  Report Type: 
  Country: None (occurrence: None)
  Receive Date: 20090227
  Receipt Date: 20090218
  Transmission Date: 20090719
  Serious: No
  Sender: FDA-Public Use
  Company Number: 2009SP001332

PATIENT
  Age: 63 Year
  Sex: Female

DRUGS (3)
  1. VIRAFERONPEG [Suspect]
     Indication: DRUG USE FOR UNKNOWN INDICATION
     Dates: start: 20070101
  2. REBETOL [Suspect]
     Indication: DRUG USE FOR UNKNOWN INDICATION
     Dates: start: 20070101
  3. MIRTAZAPINE [Concomitant]

REACTIONS (6)
  - CANDIDIASIS [None]
  - CHEILITIS [None]
  - DRY MOUTH [None]
  - ORAL MUCOSAL ERYTHEMA [None]
  - SALIVARY GLAND DISORDER [None]
  - TONGUE DISORDER [None]
